FAERS Safety Report 20329301 (Version 5)
Quarter: 2022Q1

REPORT INFORMATION
  Report Type: Report from Study
  Country: ES (occurrence: None)
  Receive Date: 20220112
  Receipt Date: 20220127
  Transmission Date: 20220423
  Serious: Yes (Death, Life-Threatening, Hospitalization)
  Sender: FDA-Public Use
  Company Number: ES-Eisai Medical Research-EC-2022-106382

PATIENT
  Age: 73 Year
  Sex: Male
  Weight: 83.7 kg

DRUGS (11)
  1. LENVATINIB [Suspect]
     Active Substance: LENVATINIB
     Indication: Adenocarcinoma gastric
     Route: 048
     Dates: start: 20211215, end: 20211230
  2. PEMBROLIZUMAB [Suspect]
     Active Substance: PEMBROLIZUMAB
     Indication: Adenocarcinoma gastric
     Route: 041
     Dates: start: 20211215, end: 20211215
  3. OXALIPLATIN [Suspect]
     Active Substance: OXALIPLATIN
     Indication: Adenocarcinoma gastric
     Dates: start: 20211215, end: 20211215
  4. CAPECITABINE [Suspect]
     Active Substance: CAPECITABINE
     Indication: Adenocarcinoma gastric
     Dosage: BID FOR 14 DAYS EVERY 3 WEEKS
     Route: 048
     Dates: start: 20211215, end: 20211215
  5. CAPECITABINE [Suspect]
     Active Substance: CAPECITABINE
     Dosage: BID FOR 14 DAYS EVERY 3 WEEKS
     Route: 048
     Dates: start: 20211216, end: 20211227
  6. CAPECITABINE [Suspect]
     Active Substance: CAPECITABINE
     Dosage: BID FOR 14 DAYS EVERY 3 WEEKS
     Route: 048
     Dates: start: 20211228, end: 20211228
  7. OMEPRAZOLE [Concomitant]
     Active Substance: OMEPRAZOLE
     Dates: start: 202101, end: 20220108
  8. DUTASTERIDE\TAMSULOSIN [Concomitant]
     Active Substance: DUTASTERIDE\TAMSULOSIN
     Dates: start: 202101, end: 20220108
  9. PYLERA [Concomitant]
     Active Substance: BISMUTH SUBCITRATE POTASSIUM\METRONIDAZOLE\TETRACYCLINE HYDROCHLORIDE
     Dates: start: 20211203, end: 20211213
  10. ONDANSETRON [Concomitant]
     Active Substance: ONDANSETRON
     Dates: start: 20211215, end: 20211215
  11. DEXAMETHASONE [Concomitant]
     Active Substance: DEXAMETHASONE
     Dates: start: 20211215, end: 20211215

REACTIONS (1)
  - Immune-mediated enterocolitis [Fatal]

NARRATIVE: CASE EVENT DATE: 20211227
